FAERS Safety Report 16454261 (Version 1)
Quarter: 2019Q2

REPORT INFORMATION
  Report Type: Spontaneous
  Country: GB (occurrence: GB)
  Receive Date: 20190619
  Receipt Date: 20190619
  Transmission Date: 20190711
  Serious: Yes (Death)
  Sender: FDA-Public Use
  Company Number: GB-MYLANLABS-2019M1057325

PATIENT
  Sex: Female

DRUGS (8)
  1. FLUOROURACIL. [Suspect]
     Active Substance: FLUOROURACIL
     Indication: HER-2 POSITIVE BREAST CANCER
     Dosage: 500 MILLIGRAM/SQ. METER(ON DAY 1 OF CYCLE 5-8)
     Route: 042
  2. EPIRUBICIN [Suspect]
     Active Substance: EPIRUBICIN
     Indication: HER-2 POSITIVE BREAST CANCER
     Dosage: 75 MILLIGRAM/SQ. METER(ON DAY 1 OF CYCLE 5-8)
     Route: 040
  3. DOCETAXEL. [Suspect]
     Active Substance: DOCETAXEL
     Indication: HER-2 POSITIVE BREAST CANCER
     Dosage: 75 MILLIGRAM/SQ. METER(ON DAY 1 OF CYCLES 1-4)
     Route: 042
  4. EPIRUBICIN [Suspect]
     Active Substance: EPIRUBICIN
     Dosage: 75 MILLIGRAM/SQ. METER(ON DAY 1 OF CYCLE 5-8)
     Route: 042
  5. CYCLOPHOSPHAMIDE. [Suspect]
     Active Substance: CYCLOPHOSPHAMIDE
     Indication: HER-2 POSITIVE BREAST CANCER
     Dosage: 500 MILLIGRAM/SQ. METER
     Route: 040
  6. HERCEPTIN [Suspect]
     Active Substance: TRASTUZUMAB
     Dosage: 6 MILLIGRAM/KILOGRAM, Q3W(ON DAY 1 OF CYCLE 2-8 EIGHT CYCLES)
     Route: 042
  7. FLUOROURACIL. [Suspect]
     Active Substance: FLUOROURACIL
     Dosage: 500 MILLIGRAM/SQ. METER(ON DAY 1 OF CYCLE 5-8)
     Route: 040
  8. HERCEPTIN [Suspect]
     Active Substance: TRASTUZUMAB
     Indication: HER-2 POSITIVE BREAST CANCER
     Dosage: 8 MILLIGRAM/KILOGRAM, Q3W(LOADING DOSE ON DAY 1 OF CYCLE 1 EIGHT CYCLE)
     Route: 042

REACTIONS (1)
  - Acute myocardial infarction [Fatal]
